FAERS Safety Report 9653188 (Version 1)
Quarter: 2013Q4

REPORT INFORMATION
  Report Type: Spontaneous
  Country: JP (occurrence: JP)
  Receive Date: 20131029
  Receipt Date: 20131029
  Transmission Date: 20140711
  Serious: Yes (Other)
  Sender: FDA-Public Use
  Company Number: JP-PFIZER INC-2013307838

PATIENT
  Sex: Male

DRUGS (1)
  1. LYRICA [Suspect]
     Indication: BACK PAIN
     Dosage: 25 MG, 3X/DAY
     Route: 048
     Dates: start: 20131026

REACTIONS (3)
  - Paralysis [Unknown]
  - Swelling face [Unknown]
  - Pain [Unknown]
